FAERS Safety Report 8767536 (Version 3)
Quarter: 2012Q4

REPORT INFORMATION
  Report Type: 
  Country: US (occurrence: US)
  Receive Date: 20120904
  Receipt Date: 20121009
  Transmission Date: 20130627
  Serious: Yes (Life-Threatening, Hospitalization, Other)
  Sender: FDA-Public Use
  Company Number: US-ACTELION-A-US2011-57272

PATIENT
  Age: 54 Year
  Sex: Female

DRUGS (23)
  1. TRACLEER [Suspect]
     Indication: PULMONARY ARTERIAL HYPERTENSION
     Dosage: 62.5 mg, bid
     Route: 048
     Dates: start: 200902
  2. TRACLEER [Suspect]
     Dosage: 62.5 mg, bid
     Route: 048
     Dates: start: 20100624
  3. TRACLEER [Suspect]
     Dosage: 125 mg, bid
     Route: 048
     Dates: start: 20100724
  4. OXYGEN [Concomitant]
  5. CELLCEPT [Concomitant]
  6. ALENDRONATE [Concomitant]
  7. AMBIEN [Concomitant]
  8. ASPIRIN [Concomitant]
  9. ATENOLOL [Concomitant]
  10. AZATHIOPRINE [Concomitant]
  11. FUROSEMIDE [Concomitant]
  12. GABAPENTIN [Concomitant]
  13. GLIMEPIRIDE [Concomitant]
  14. HYDROCODONE [Concomitant]
  15. IBUPROFEN [Concomitant]
  16. LIDODERM [Concomitant]
  17. LIPITOR [Concomitant]
  18. METFORMIN [Concomitant]
  19. NITROGLYCERIN [Concomitant]
  20. NYSTATIN [Concomitant]
  21. PHENAZOPYRIDINE [Concomitant]
  22. PREDNISONE [Concomitant]
  23. SPIRONOLACTONE [Concomitant]

REACTIONS (21)
  - Respiratory failure [Not Recovered/Not Resolved]
  - Hypoxia [Not Recovered/Not Resolved]
  - Septic shock [Recovering/Resolving]
  - Urinary tract infection [Recovering/Resolving]
  - Clostridium difficile colitis [Recovering/Resolving]
  - Dehydration [Recovering/Resolving]
  - Abdominal wall haematoma [Recovering/Resolving]
  - Vaginitis viral [Recovering/Resolving]
  - Pleural effusion [Recovering/Resolving]
  - Lactic acidosis [Recovering/Resolving]
  - Cholecystectomy [Recovered/Resolved]
  - Respiratory tract infection [Not Recovered/Not Resolved]
  - Blood pressure decreased [Recovering/Resolving]
  - Herpes simplex [Recovering/Resolving]
  - Depressed level of consciousness [Not Recovered/Not Resolved]
  - Chest discomfort [Not Recovered/Not Resolved]
  - Dyspnoea [Not Recovered/Not Resolved]
  - Diarrhoea [Recovering/Resolving]
  - Endotracheal intubation [Not Recovered/Not Resolved]
  - Adrenal insufficiency [Recovering/Resolving]
  - Hyperglycaemia [Recovering/Resolving]
